FAERS Safety Report 13689122 (Version 1)
Quarter: 2017Q2

REPORT INFORMATION
  Report Type: Spontaneous
  Country: US (occurrence: US)
  Receive Date: 20170624
  Receipt Date: 20170624
  Transmission Date: 20170830
  Serious: Yes (Disabling)
  Sender: FDA-Public Use
  Company Number: None

PATIENT
  Age: 62 Year
  Sex: Female
  Weight: 78.75 kg

DRUGS (12)
  1. MAGNESIUM [Concomitant]
     Active Substance: MAGNESIUM
  2. MULTI VITAMIN [Concomitant]
     Active Substance: VITAMINS
  3. VALIUM [Suspect]
     Active Substance: DIAZEPAM
     Dosage: ?          OTHER STRENGTH:MG;?
     Route: 067
     Dates: start: 20120425, end: 20150717
  4. FISH OIL [Concomitant]
     Active Substance: FISH OIL
  5. XANAX [Suspect]
     Active Substance: ALPRAZOLAM
     Indication: ANXIETY
     Dosage: ?          OTHER STRENGTH:MG;?
     Route: 048
     Dates: start: 20110615, end: 20130615
  6. CARITA XT [Concomitant]
  7. VITAMIN C [Concomitant]
     Active Substance: ASCORBIC ACID
  8. TAURINE [Concomitant]
     Active Substance: TAURINE
  9. COENZYME Q10 [Concomitant]
     Active Substance: UBIDECARENONE
  10. XANAX [Suspect]
     Active Substance: ALPRAZOLAM
     Indication: PAIN
     Dosage: ?          OTHER STRENGTH:MG;?
     Route: 048
     Dates: start: 20110615, end: 20130615
  11. VITAMIN D [Concomitant]
     Active Substance: CHOLECALCIFEROL
  12. IRON [Concomitant]
     Active Substance: IRON

REACTIONS (16)
  - Akathisia [None]
  - Nausea [None]
  - Withdrawal syndrome [None]
  - Gait disturbance [None]
  - Suicidal ideation [None]
  - Pain [None]
  - Depression [None]
  - Derealisation [None]
  - Vulvovaginal pain [None]
  - Vertigo [None]
  - Burning sensation [None]
  - Arrhythmia [None]
  - Anxiety [None]
  - Depersonalisation/derealisation disorder [None]
  - Insomnia [None]
  - Hyperacusis [None]

NARRATIVE: CASE EVENT DATE: 20121212
